FAERS Safety Report 20386612 (Version 2)
Quarter: 2022Q1

REPORT INFORMATION
  Report Type: Spontaneous
  Country: RU (occurrence: None)
  Receive Date: 20220127
  Receipt Date: 20220209
  Transmission Date: 20220423
  Serious: Yes (Other)
  Sender: FDA-Public Use
  Company Number: 2022A040691

PATIENT
  Sex: Female

DRUGS (1)
  1. SYMBICORT [Suspect]
     Active Substance: BUDESONIDE\FORMOTEROL FUMARATE DIHYDRATE
     Dosage: 160/4,5 MCG/DOSE 120 DOSES UNKNOWN
     Route: 055

REACTIONS (3)
  - Asthma [Unknown]
  - Device delivery system issue [Unknown]
  - Device malfunction [Unknown]
